FAERS Safety Report 6429071-8 (Version None)
Quarter: 2009Q4

REPORT INFORMATION
  Report Type: 
  Country: None (occurrence: None)
  Receive Date: 20091105
  Receipt Date: 20091027
  Transmission Date: 20100525
  Serious: Yes (Hospitalization)
  Sender: FDA-Public Use
  Company Number: FR-PFIZER INC-2009288718

PATIENT
  Age: 86 Year
  Sex: Female

DRUGS (13)
  1. TAHOR [Suspect]
     Dosage: 1 TABLET, 1X/DAY
     Route: 048
     Dates: start: 20090615, end: 20090828
  2. DETENSIEL [Concomitant]
     Dosage: 1 TABLET, 1X/DAY
  3. LASILIX [Concomitant]
     Dosage: 1 TABLET, ALTERNATE DAY
  4. COVERSYL [Concomitant]
     Dosage: 10 MG, 1X/DAY
  5. ADANCOR [Concomitant]
     Dosage: 20 MG, 2X/DAY
  6. DI-ANTALVIC [Concomitant]
     Dosage: 1 CAPSULE, 2X/DAY
  7. MYOLASTAN [Concomitant]
     Dosage: 1/2 TABLET, 2X/DAY
  8. STRUCTUM [Concomitant]
     Dosage: 500 MG, 2X/DAY
  9. VEINAMITOL [Concomitant]
     Dosage: 1 SACHET, 1X/DAY
  10. FLECTOR EP TISSUGEL [Concomitant]
  11. NEXIUM [Concomitant]
     Dosage: 1 TABLET, 1X/DAY
  12. DOMPERIDONE [Concomitant]
     Dosage: 1 TABLET, 1X/DAY
  13. DITROPAN [Concomitant]
     Dosage: 1 TABLET, 1X/DAY

REACTIONS (1)
  - IDIOPATHIC THROMBOCYTOPENIC PURPURA [None]
